FAERS Safety Report 6068466-1 (Version None)
Quarter: 2009Q1

REPORT INFORMATION
  Report Type: 
  Country: None (occurrence: None)
  Receive Date: 20090206
  Receipt Date: 20090129
  Transmission Date: 20090719
  Serious: Yes (Hospitalization, Other)
  Sender: FDA-Public Use
  Company Number: CL-ABBOTT-08P-034-0495219-00

PATIENT
  Sex: Female
  Weight: 70 kg

DRUGS (17)
  1. HUMIRA [Suspect]
     Indication: RHEUMATOID ARTHRITIS
     Route: 058
     Dates: start: 20070830, end: 20081101
  2. FOLIC ACID [Concomitant]
     Indication: VITAMIN SUPPLEMENTATION
     Route: 048
     Dates: start: 20060101, end: 20081001
  3. PREDNISONE [Concomitant]
     Indication: RHEUMATOID ARTHRITIS
     Route: 048
  4. METHOTREXATE [Concomitant]
     Indication: RHEUMATOID ARTHRITIS
     Route: 048
     Dates: end: 20081001
  5. CLONAZEPAM [Concomitant]
     Indication: ANXIETY
     Route: 048
  6. ATENOLOL [Concomitant]
     Indication: ORTHOSTATIC HYPOTENSION
     Route: 048
  7. ATENOLOL [Concomitant]
     Indication: CARDIAC MURMUR
  8. LEVOTHYROXINE [Concomitant]
     Indication: HYPOTHYROIDISM
     Route: 048
     Dates: start: 20040101
  9. OMEPRAZOLE [Concomitant]
     Indication: PROPHYLAXIS AGAINST GASTROINTESTINAL ULCER
     Route: 048
  10. SULFASALAZINE [Concomitant]
     Indication: ADVERSE REACTION
     Route: 048
  11. CITALOPRAM HYDROBROMIDE [Concomitant]
     Indication: DEPRESSION
     Route: 048
  12. ACETAMINOPHEN AND TRAMADOL HCL [Concomitant]
     Indication: PAIN
     Dosage: 37.5MG/325MG DAILY
     Route: 048
  13. ACETAMINOPHEN AND TRAMADOL HCL [Concomitant]
     Indication: ADVERSE REACTION
  14. CLORAZEPATE DIPOTASSIUM [Concomitant]
     Indication: ANXIETY
     Route: 048
  15. PREGABALIN [Concomitant]
     Indication: ANXIETY
     Route: 048
     Dates: start: 20080101
  16. MIDODRINE [Concomitant]
     Indication: ORTHOSTATIC HYPOTENSION
     Route: 048
     Dates: start: 20080101
  17. MIDODRINE [Concomitant]
     Indication: CARDIAC MURMUR

REACTIONS (2)
  - ANAEMIA [None]
  - DIFFUSE LARGE B-CELL LYMPHOMA STAGE IV [None]
